FAERS Safety Report 9416796 (Version 1)
Quarter: 2013Q3

REPORT INFORMATION
  Report Type: Spontaneous
  Country: US (occurrence: US)
  Receive Date: 20130724
  Receipt Date: 20130724
  Transmission Date: 20140515
  Serious: No
  Sender: FDA-Public Use
  Company Number: US-GALDERMA-US13001091

PATIENT
  Age: 46 Year
  Sex: Female

DRUGS (10)
  1. ORACEA (DOXYCYCLINE, USP) CAPSULES 40 MG [Suspect]
     Indication: ACNE
     Route: 048
     Dates: start: 20130403, end: 20130403
  2. ORACEA (DOXYCYCLINE, USP) CAPSULES 40 MG [Suspect]
     Route: 048
     Dates: start: 20130405, end: 20130405
  3. DOXYCYCLINE HYCLATE [Suspect]
     Indication: ACNE
     Route: 048
     Dates: start: 20130404, end: 20130404
  4. TAZORAC [Suspect]
     Indication: ACNE
     Route: 061
     Dates: start: 20130403
  5. ACZONE [Suspect]
     Indication: ACNE
     Route: 061
     Dates: start: 20130401
  6. LEVOTHYROXINE [Concomitant]
     Indication: HYPOTHYROIDISM
     Route: 048
  7. LEVOTHYROXINE [Concomitant]
     Dates: start: 201303, end: 201303
  8. LEVOTHYROXINE [Concomitant]
     Dates: start: 201303
  9. CAMBIA [Concomitant]
     Indication: MIGRAINE
     Route: 048
  10. VITAMINS [Concomitant]
     Indication: VITAMIN SUPPLEMENTATION

REACTIONS (9)
  - Nausea [Recovering/Resolving]
  - Hyperhidrosis [Recovering/Resolving]
  - Dizziness [Recovered/Resolved]
  - Pain [Recovering/Resolving]
  - Chills [Recovering/Resolving]
  - Pyrexia [Recovering/Resolving]
  - Asthenia [Recovering/Resolving]
  - Decreased appetite [Not Recovered/Not Resolved]
  - Off label use [Recovered/Resolved]
